FAERS Safety Report 13775517 (Version 1)
Quarter: 2017Q3

REPORT INFORMATION
  Report Type: Spontaneous
  Country: JP (occurrence: JP)
  Receive Date: 20170720
  Receipt Date: 20170720
  Transmission Date: 20171127
  Serious: Yes (Hospitalization, Other)
  Sender: FDA-Public Use
  Company Number: PHJP2015JP015389

PATIENT
  Age: 74 Year
  Sex: Female

DRUGS (4)
  1. AFINITOR [Suspect]
     Active Substance: EVEROLIMUS
     Indication: BREAST CANCER
     Dosage: 5 MG, QD
     Route: 048
     Dates: start: 20150624, end: 20150831
  2. AFINITOR [Suspect]
     Active Substance: EVEROLIMUS
     Dosage: UNK (REDUCED DOSE)
     Route: 065
  3. INSULIN [Concomitant]
     Active Substance: INSULIN NOS
     Indication: HYPERGLYCAEMIA
     Dosage: UNK
     Route: 065
  4. EXEMESTANE. [Concomitant]
     Active Substance: EXEMESTANE
     Indication: BREAST CANCER
     Dosage: UNK
     Route: 048

REACTIONS (9)
  - Acute kidney injury [Unknown]
  - Feeding disorder [Unknown]
  - Urine output decreased [Unknown]
  - Pyrexia [Unknown]
  - Stomatitis [Unknown]
  - Renal impairment [Recovering/Resolving]
  - Dehydration [Unknown]
  - Blood creatinine increased [Unknown]
  - Pneumocystis jirovecii pneumonia [Recovering/Resolving]

NARRATIVE: CASE EVENT DATE: 20150831
